FAERS Safety Report 18441829 (Version 3)
Quarter: 2022Q1

REPORT INFORMATION
  Report Type: Report from Study
  Country: US (occurrence: US)
  Receive Date: 20201029
  Receipt Date: 20220126
  Transmission Date: 20220423
  Serious: No
  Sender: FDA-Public Use
  Company Number: US-NOVARTISTESTPH-NVSC2020US288629

PATIENT
  Age: 21 Year
  Sex: Male
  Weight: 59.5 kg

DRUGS (2)
  1. ILARIS [Suspect]
     Active Substance: CANAKINUMAB
     Indication: Still^s disease
     Dosage: 227 MG, QMO
     Route: 058
     Dates: start: 20200702
  2. ILARIS [Suspect]
     Active Substance: CANAKINUMAB
     Dosage: 243 MG (EVERY 8 WEEKS)
     Route: 058
     Dates: start: 20200702

REACTIONS (2)
  - Incorrect dose administered [Unknown]
  - Incorrect dose administered [Unknown]

NARRATIVE: CASE EVENT DATE: 20211126
